FAERS Safety Report 18882784 (Version 1)
Quarter: 2021Q1

REPORT INFORMATION
  Report Type: Spontaneous
  Country: US (occurrence: US)
  Receive Date: 20210211
  Receipt Date: 20210211
  Transmission Date: 20210420
  Serious: No
  Sender: FDA-Public Use
  Company Number: US-PFIZER INC-2021098885

PATIENT
  Age: 67 Year
  Sex: Female

DRUGS (1)
  1. CYTOTEC [Suspect]
     Active Substance: MISOPROSTOL
     Indication: GASTRITIS
     Dosage: UNK

REACTIONS (2)
  - Pruritus [Unknown]
  - Off label use [Recovered/Resolved]
